FAERS Safety Report 5688759-7 (Version None)
Quarter: 2008Q1

REPORT INFORMATION
  Report Type: 
  Country: None (occurrence: None)
  Receive Date: 20080331
  Receipt Date: 20080318
  Transmission Date: 20080703
  Serious: Yes (Death)
  Sender: FDA-Public Use
  Company Number: GB-AMGEN-US270692

PATIENT
  Age: 72 Year
  Sex: Male
  Weight: 84 kg

DRUGS (9)
  1. ENBREL [Suspect]
     Indication: DRUG USE FOR UNKNOWN INDICATION
     Route: 065
     Dates: start: 20050101, end: 20050308
  2. HUMIRA [Suspect]
     Route: 058
     Dates: start: 20050308, end: 20050510
  3. ACETYLSALICYLIC ACID SRT [Concomitant]
     Dosage: 75 MG FREQUENCY UNKNOWN
     Route: 065
  4. ALENDRONIC ACID [Concomitant]
     Indication: CARDIOVASCULAR EVENT PROPHYLAXIS
     Dosage: UNKNOWN
     Route: 065
  5. PREDNISOLONE [Concomitant]
     Indication: RHEUMATOID ARTHRITIS
     Dosage: UNKNOWN
     Route: 065
  6. CELECOXIB [Concomitant]
     Dosage: UNKNOWN
     Route: 065
  7. DIGOXIN [Concomitant]
     Indication: ATRIAL FIBRILLATION
     Route: 065
  8. RISEDRONATE SODIUM [Concomitant]
     Indication: OSTEOPOROSIS
     Route: 065
  9. AMLODIPINE [Concomitant]
     Dosage: UNKNOWN
     Route: 065

REACTIONS (3)
  - B-CELL LYMPHOMA [None]
  - EXTRANODAL MARGINAL ZONE B-CELL LYMPHOMA (MALT TYPE) [None]
  - METASTATIC GASTRIC CANCER [None]
